FAERS Safety Report 15358357 (Version 3)
Quarter: 2018Q3

REPORT INFORMATION
  Report Type: Spontaneous
  Country: US (occurrence: US)
  Receive Date: 20180906
  Receipt Date: 20180917
  Transmission Date: 20181010
  Serious: Yes (Other)
  Sender: FDA-Public Use
  Company Number: US-BIOGEN-2018BI00627586

PATIENT
  Age: 41 Year
  Sex: Female

DRUGS (2)
  1. AVONEX [Suspect]
     Active Substance: INTERFERON BETA-1A
     Route: 030
     Dates: start: 200402, end: 200606
  2. AVONEX [Suspect]
     Active Substance: INTERFERON BETA-1A
     Indication: MULTIPLE SCLEROSIS
     Route: 030

REACTIONS (8)
  - Contusion [Recovered/Resolved]
  - Muscle spasms [Recovered/Resolved]
  - Urticaria [Recovered/Resolved]
  - Restless legs syndrome [Not Recovered/Not Resolved]
  - Skin burning sensation [Recovered/Resolved]
  - Seizure [Recovered/Resolved]
  - Pain [Recovered/Resolved]
  - Skin swelling [Recovered/Resolved]

NARRATIVE: CASE EVENT DATE: 200402
